FAERS Safety Report 26186578 (Version 1)
Quarter: 2025Q4

REPORT INFORMATION
  Report Type: Spontaneous
  Country: US (occurrence: US)
  Receive Date: 20251222
  Receipt Date: 20251222
  Transmission Date: 20260118
  Serious: No
  Sender: SANOFI AVENTIS
  Company Number: US-SA-2025SA380219

PATIENT
  Sex: Male

DRUGS (10)
  1. DUPIXENT [Suspect]
     Active Substance: DUPILUMAB
     Indication: Hypothyroidism
     Dosage: UNK UNK, 1X
     Route: 058
  2. DUPIXENT [Suspect]
     Active Substance: DUPILUMAB
     Dosage: 300 MG, QOW
     Route: 058
  3. ESTRADIOL [Concomitant]
     Active Substance: ESTRADIOL
     Dosage: UNK
  4. MAGNESIUM [Concomitant]
     Active Substance: MAGNESIUM
     Dosage: UNK
  5. VITAMIN D3 [Concomitant]
     Active Substance: CHOLECALCIFEROL
     Dosage: UNK
  6. ZINC [Concomitant]
     Active Substance: ZINC
     Dosage: UNK
  7. AMLODIPINE BESYLATE [Concomitant]
     Active Substance: AMLODIPINE BESYLATE
     Dosage: UNK
  8. LEVOTHYROXINE [Concomitant]
     Active Substance: LEVOTHYROXINE
     Dosage: UNK
  9. PREMARIN [Concomitant]
     Active Substance: ESTROGENS, CONJUGATED
     Dosage: UNK
  10. TAFLUPROST [Concomitant]
     Active Substance: TAFLUPROST
     Dosage: UNK

REACTIONS (2)
  - Muscular weakness [Not Recovered/Not Resolved]
  - Product use in unapproved indication [Unknown]
